FAERS Safety Report 22233437 (Version 1)
Quarter: 2023Q2

REPORT INFORMATION
  Report Type: Spontaneous
  Country: US (occurrence: None)
  Receive Date: 20230419
  Receipt Date: 20230419
  Transmission Date: 20230722
  Serious: Yes (Other)
  Sender: FDA-Public Use
  Company Number: None

PATIENT
  Age: 47 Year
  Sex: Female
  Weight: 112.5 kg

DRUGS (5)
  1. OCRELIZUMAB [Suspect]
     Active Substance: OCRELIZUMAB
     Indication: Multiple sclerosis
     Dosage: OTHER FREQUENCY : EVERY 6 MONTH;?
     Route: 042
     Dates: start: 20191130
  2. LIORESAL [Concomitant]
     Active Substance: BACLOFEN
     Dates: start: 20211207, end: 20221205
  3. VITAMIN D 1,250 mcg [Concomitant]
     Dates: start: 20131217
  4. NEURONTIN [Concomitant]
     Active Substance: GABAPENTIN
     Dates: start: 20140424, end: 20220627
  5. phentermine 15 mg capsule [Concomitant]
     Dates: start: 20210701

REACTIONS (2)
  - Muscular weakness [None]
  - Multiple sclerosis pseudo relapse [None]

NARRATIVE: CASE EVENT DATE: 20211207
